FAERS Safety Report 18475124 (Version 7)
Quarter: 2021Q1

REPORT INFORMATION
  Report Type: Report from Study
  Country: CO (occurrence: CO)
  Receive Date: 20201106
  Receipt Date: 20210324
  Transmission Date: 20210419
  Serious: Yes (Hospitalization, Other)
  Sender: FDA-Public Use
  Company Number: CO-AMGEN-COLSL2020163723

PATIENT
  Age: 55 Year
  Sex: Female

DRUGS (2)
  1. VECTIBIX [Suspect]
     Active Substance: PANITUMUMAB
     Indication: COLORECTAL CANCER METASTATIC
     Dosage: 360 MILLIGRAM, Q2WK
     Route: 042
     Dates: start: 20200903, end: 20201203
  2. ARTIFICIAL TEARS [HYPROMELLOSE] [Concomitant]
     Dosage: UNK UNK, Q12H

REACTIONS (17)
  - Eye irritation [Recovering/Resolving]
  - Skin fissures [Recovering/Resolving]
  - Ocular hyperaemia [Recovering/Resolving]
  - Dry skin [Recovering/Resolving]
  - Oral herpes [Unknown]
  - Skin laceration [Recovering/Resolving]
  - Epistaxis [Recovering/Resolving]
  - Decreased immune responsiveness [Recovering/Resolving]
  - Liver operation [Recovering/Resolving]
  - Skin reaction [Recovering/Resolving]
  - Skin haemorrhage [Recovering/Resolving]
  - Mouth haemorrhage [Recovering/Resolving]
  - Colon operation [Recovering/Resolving]
  - Haemorrhage [Recovering/Resolving]
  - Inflammation [Recovering/Resolving]
  - Eyelid injury [Recovering/Resolving]
  - Scab [Recovering/Resolving]

NARRATIVE: CASE EVENT DATE: 20200917
